FAERS Safety Report 4402183-6 (Version None)
Quarter: 2004Q3

REPORT INFORMATION
  Report Type: 
  Country: None (occurrence: None)
  Receive Date: 20040716
  Receipt Date: 20040702
  Transmission Date: 20050211
  Serious: Yes (Hospitalization)
  Sender: FDA-Public Use
  Company Number: 02100-JPN-04-0129

PATIENT
  Age: 88 Year
  Sex: Female

DRUGS (4)
  1. CILOSTAZOL [Suspect]
     Dosage: 200 MG  ORAL
     Route: 048
     Dates: start: 20021007, end: 20040101
  2. CILOSTAZOL [Suspect]
     Dosage: 200 MG  ORAL
     Route: 048
     Dates: start: 20040224, end: 20040422
  3. FAMOTIDINE [Concomitant]
  4. FEXOFENADINE HYDROCHLORIDE [Concomitant]

REACTIONS (15)
  - ANOREXIA [None]
  - BLOOD MAGNESIUM INCREASED [None]
  - BRADYCARDIA [None]
  - BRAIN NATRIURETIC PEPTIDE INCREASED [None]
  - C-REACTIVE PROTEIN INCREASED [None]
  - CARDIAC FAILURE [None]
  - ELECTROCARDIOGRAM QT PROLONGED [None]
  - HEART RATE DECREASED [None]
  - LOSS OF CONSCIOUSNESS [None]
  - MALAISE [None]
  - OEDEMA PERIPHERAL [None]
  - RESPIRATORY ARREST [None]
  - TORSADE DE POINTES [None]
  - UNEVALUABLE EVENT [None]
  - VENTRICULAR TACHYCARDIA [None]
